FAERS Safety Report 9092226 (Version 1)
Quarter: 2013Q1

REPORT INFORMATION
  Report Type: Spontaneous
  Country: NO (occurrence: NO)
  Receive Date: 20130201
  Receipt Date: 20130201
  Transmission Date: 20140127
  Serious: Yes (Life-Threatening, Hospitalization)
  Sender: FDA-Public Use
  Company Number: NO-ELI_LILLY_AND_COMPANY-NO201301008524

PATIENT
  Age: 13 Year
  Sex: Female

DRUGS (4)
  1. STRATTERA [Suspect]
     Indication: ATTENTION DEFICIT/HYPERACTIVITY DISORDER
     Dosage: 80 MG, QD
     Route: 048
     Dates: start: 2010, end: 20121218
  2. SIMVASTATIN [Concomitant]
     Indication: HYPERCHOLESTEROLAEMIA
     Dosage: 10 MG, QD
     Dates: start: 2011
  3. VITAMIN B-COMPLEX, PLAIN [Concomitant]
     Dosage: UNK UNK, QD
     Dates: end: 201211
  4. LEVAXIN [Concomitant]
     Indication: HYPOTHYROIDISM
     Dosage: 125 UG, QD
     Dates: start: 2011

REACTIONS (1)
  - Congestive cardiomyopathy [Recovering/Resolving]
